FAERS Safety Report 18034397 (Version 1)
Quarter: 2020Q3

REPORT INFORMATION
  Report Type: Other
  Country: CN (occurrence: CN)
  Receive Date: 20200716
  Receipt Date: 20200716
  Transmission Date: 20201103
  Serious: Yes (Hospitalization)
  Sender: FDA-Public Use
  Company Number: CN-TOPROL ACQUISITION LLC-2020-TOP-000290

PATIENT
  Age: 73 Year
  Sex: Male

DRUGS (2)
  1. METOPROLOL SUCCINATE. [Suspect]
     Active Substance: METOPROLOL SUCCINATE
     Indication: ARTERIOSCLEROSIS CORONARY ARTERY
  2. METOPROLOL SUCCINATE. [Suspect]
     Active Substance: METOPROLOL SUCCINATE
     Indication: VENTRICULAR ARRHYTHMIA
     Dosage: 71.25 MG, DAILY
     Route: 048
     Dates: start: 20161107, end: 20200610

REACTIONS (3)
  - Dizziness [Unknown]
  - Chest discomfort [Unknown]
  - Arrhythmia [Unknown]

NARRATIVE: CASE EVENT DATE: 20200607
